FAERS Safety Report 17042053 (Version 1)
Quarter: 2019Q4

REPORT INFORMATION
  Report Type: Spontaneous
  Country: GB (occurrence: GB)
  Receive Date: 20191118
  Receipt Date: 20191118
  Transmission Date: 20200122
  Serious: Yes (Other)
  Sender: FDA-Public Use
  Company Number: GB-TEVA-2019-GB-1138321

PATIENT
  Age: 47 Year
  Sex: Male
  Weight: 65 kg

DRUGS (2)
  1. OFLOXACIN. [Suspect]
     Active Substance: OFLOXACIN
     Indication: ORCHITIS
     Dosage: 800 MILLIGRAM PER DAY
     Route: 048
     Dates: start: 20190927, end: 20190928
  2. LORATADINE. [Concomitant]
     Active Substance: LORATADINE

REACTIONS (5)
  - Burning sensation [Unknown]
  - Paraesthesia [Not Recovered/Not Resolved]
  - Pyrexia [Unknown]
  - Myalgia [Not Recovered/Not Resolved]
  - Cough [Not Recovered/Not Resolved]

NARRATIVE: CASE EVENT DATE: 20190927
